FAERS Safety Report 4578140-6 (Version None)
Quarter: 2005Q1

REPORT INFORMATION
  Report Type: 
  Country: None (occurrence: None)
  Receive Date: 20050209
  Receipt Date: 20050125
  Transmission Date: 20050727
  Serious: Yes (Other)
  Sender: FDA-Public Use
  Company Number: EWC050142449

PATIENT
  Age: 77 Year
  Sex: Male
  Weight: 60 kg

DRUGS (7)
  1. ALIMTA [Suspect]
     Indication: MESOTHELIOMA MALIGNANT
     Dosage: 850 MG
     Dates: start: 20041207, end: 20041229
  2. ESOMEPRAZOLE [Concomitant]
  3. BAMIFYLLINE [Concomitant]
  4. DELTACORTENE (PREDNISONE) [Concomitant]
  5. TRAMADOL HCL [Concomitant]
  6. FOLIC ACID [Concomitant]
  7. VITAMIN B-12 [Concomitant]

REACTIONS (5)
  - ASTHENIA [None]
  - CEREBRAL ATROPHY [None]
  - CONFUSIONAL STATE [None]
  - DYSARTHRIA [None]
  - TACHYCARDIA [None]
